FAERS Safety Report 8430766-5 (Version None)
Quarter: 2012Q2

REPORT INFORMATION
  Report Type: 
  Country: None (occurrence: None)
  Receive Date: 20120612
  Receipt Date: 20120531
  Transmission Date: 20120825
  Serious: Yes (Hospitalization, Other)
  Sender: FDA-Public Use
  Company Number: US-ELI_LILLY_AND_COMPANY-US201104001648

PATIENT
  Sex: Female
  Weight: 46.712 kg

DRUGS (22)
  1. FORTEO [Suspect]
     Dosage: 20 UG, QD
     Route: 058
  2. PRESTYL [Concomitant]
  3. CALCIUM 600 PLUS VITAMIN D [Concomitant]
     Dosage: 600 MG, UNKNOWN
  4. FORTEO [Suspect]
     Indication: OSTEOPOROSIS
     Dosage: 20 UG, QD
     Route: 058
     Dates: start: 20101026
  5. FORTEO [Suspect]
     Dosage: 20 UG, QD
     Route: 058
  6. FORTEO [Suspect]
     Dosage: 20 UG, QD
     Route: 058
  7. METOPROLOL [Concomitant]
     Dosage: 25 MG, QD
  8. METOPROLOL [Concomitant]
     Dosage: 50 MG, QD
  9. FOLIC ACID [Concomitant]
     Dosage: 1 MG, QD
  10. CORTICOSTEROID NOS [Concomitant]
  11. ZOCOR [Concomitant]
     Dosage: 40 MG, QD
  12. PRISTIQ [Concomitant]
     Dosage: 50 MG, QD
  13. NEXIUM [Concomitant]
     Dosage: 40 MG, QD
  14. AMLODIPINE [Concomitant]
     Dosage: 50 MG, QD
  15. MONOPRIL [Concomitant]
  16. LEFLUNOMIDE [Concomitant]
     Dosage: 20 MG, QD
  17. VITAMIN D [Concomitant]
     Dosage: 50000 IU, QD
  18. FORTEO [Suspect]
     Dosage: 20 UG, QD
     Route: 058
  19. SIMVASTATIN [Concomitant]
     Dosage: 80 MG, QD
  20. LYRICA [Concomitant]
     Indication: NEURALGIA
     Dosage: 50 MG, TID
  21. FORTEO [Suspect]
     Dosage: 20 UG, QD
     Route: 058
  22. ASPIRIN [Concomitant]
     Dosage: 81 MG, QD

REACTIONS (23)
  - FALL [None]
  - WEIGHT INCREASED [None]
  - PAIN IN EXTREMITY [None]
  - ALOPECIA [None]
  - ASTHENIA [None]
  - HIP FRACTURE [None]
  - BALANCE DISORDER [None]
  - VOMITING [None]
  - PELVIC FRACTURE [None]
  - HOSPITALISATION [None]
  - DIARRHOEA [None]
  - INFLUENZA [None]
  - INFLUENZA LIKE ILLNESS [None]
  - WEIGHT DECREASED [None]
  - MALAISE [None]
  - INJECTION SITE HAEMATOMA [None]
  - NEURALGIA [None]
  - GROIN PAIN [None]
  - NAUSEA [None]
  - FEMUR FRACTURE [None]
  - DYSSTASIA [None]
  - ARTHROPATHY [None]
  - BLOOD CHOLESTEROL DECREASED [None]
